FAERS Safety Report 24400091 (Version 1)
Quarter: 2024Q4

REPORT INFORMATION
  Report Type: Spontaneous
  Country: US (occurrence: US)
  Receive Date: 20241005
  Receipt Date: 20241005
  Transmission Date: 20250114
  Serious: Yes (Hospitalization)
  Sender: NEXUS PHARMACEUTICALS
  Company Number: US-Nexus Pharma-000319

PATIENT
  Age: 10 Month
  Sex: Female

DRUGS (1)
  1. FLUORESCEIN [Suspect]
     Active Substance: FLUORESCEIN
     Indication: Angiogram
     Dosage: EQUIVALENT TO 33.9 MG/KG
     Route: 042

REACTIONS (6)
  - Yellow skin [Recovered/Resolved]
  - Scleral discolouration [Recovered/Resolved]
  - Faeces discoloured [Recovering/Resolving]
  - Chromaturia [Recovering/Resolving]
  - Accidental overdose [Unknown]
  - Incorrect dose administered [Unknown]
